FAERS Safety Report 14118952 (Version 1)
Quarter: 2017Q4

REPORT INFORMATION
  Report Type: Spontaneous
  Country: DE (occurrence: DE)
  Receive Date: 20171024
  Receipt Date: 20171024
  Transmission Date: 20180321
  Serious: Yes (Other)
  Sender: FDA-Public Use
  Company Number: DE-ASTRAZENECA-2017SF07104

PATIENT
  Sex: Female

DRUGS (2)
  1. FASLODEX [Suspect]
     Active Substance: FULVESTRANT
     Indication: PALLIATIVE CARE
     Route: 030
  2. IBRANCE [Suspect]
     Active Substance: PALBOCICLIB
     Indication: PALLIATIVE CARE
     Route: 048

REACTIONS (3)
  - Malignant pleural effusion [Unknown]
  - Respiratory tract infection [Unknown]
  - Leukopenia [Unknown]
